FAERS Safety Report 24428138 (Version 1)
Quarter: 2024Q4

REPORT INFORMATION
  Report Type: Spontaneous
  Country: US (occurrence: None)
  Receive Date: 20241010
  Receipt Date: 20241010
  Transmission Date: 20250115
  Serious: No
  Sender: Public
  Company Number: None

PATIENT
  Age: 40 Year
  Sex: Female

DRUGS (1)
  1. ADALIMUMAB-FKJP [Suspect]
     Active Substance: ADALIMUMAB-FKJP
     Dates: start: 20240919, end: 20241010

REACTIONS (1)
  - Pruritus [None]

NARRATIVE: CASE EVENT DATE: 20241001
